FAERS Safety Report 7416873-4 (Version None)
Quarter: 2011Q2

REPORT INFORMATION
  Report Type: 
  Country: None (occurrence: None)
  Receive Date: 20110415
  Receipt Date: 20101202
  Transmission Date: 20111010
  Serious: Yes (Death, Hospitalization)
  Sender: FDA-Public Use
  Company Number: DE-JNJFOC-20101200131

PATIENT
  Sex: Female
  Weight: 75 kg

DRUGS (5)
  1. YONDELIS [Suspect]
     Dosage: CYCLES 1 - 4
     Route: 042
  2. ONDANSETRON [Concomitant]
     Indication: ANTIEMETIC SUPPORTIVE CARE
     Route: 042
  3. DEXAMETHASONE [Concomitant]
     Indication: PALLIATIVE CARE
     Route: 065
  4. YONDELIS [Suspect]
     Indication: NEOPLASM MALIGNANT
     Dosage: CYCLE 5
     Route: 042
  5. CAEYLX [Suspect]
     Indication: NEOPLASM MALIGNANT
     Route: 042

REACTIONS (2)
  - SEPSIS [None]
  - FEBRILE NEUTROPENIA [None]
